FAERS Safety Report 9082860 (Version 1)
Quarter: 2013Q1

REPORT INFORMATION
  Report Type: Spontaneous
  Country: US (occurrence: US)
  Receive Date: 20130130
  Receipt Date: 20130130
  Transmission Date: 20140127
  Serious: No
  Sender: FDA-Public Use
  Company Number: US-ABBOTT-12P-163-0961856-00

PATIENT
  Sex: Male
  Weight: 72.64 kg

DRUGS (2)
  1. HUMIRA 40 MG/0.8 ML PEN [Suspect]
     Indication: PSORIASIS
     Route: 058
     Dates: start: 2011, end: 201112
  2. ATENOLOL [Concomitant]
     Indication: BLOOD PRESSURE

REACTIONS (2)
  - Psoriasis [Not Recovered/Not Resolved]
  - Discomfort [Not Recovered/Not Resolved]
